FAERS Safety Report 16812379 (Version 1)
Quarter: 2019Q3

REPORT INFORMATION
  Report Type: Spontaneous
  Country: PT (occurrence: GB)
  Receive Date: 20190916
  Receipt Date: 20190916
  Transmission Date: 20191005
  Serious: Yes (Hospitalization, Other)
  Sender: FDA-Public Use
  Company Number: PT-SUNOVION-2019SUN003796

PATIENT

DRUGS (7)
  1. ESLICARBAZEPINE ACETATE [Suspect]
     Active Substance: ESLICARBAZEPINE ACETATE
     Indication: PRODUCT USED FOR UNKNOWN INDICATION
     Dosage: 400 MG, QD
     Route: 048
  2. SIMVASTATIN. [Concomitant]
     Active Substance: SIMVASTATIN
     Dosage: 40 MG, QD
  3. LEVOTHYROXINE. [Concomitant]
     Active Substance: LEVOTHYROXINE
     Dosage: 75 ?G, QD
  4. CLOPIDOGREL [Concomitant]
     Active Substance: CLOPIDOGREL BISULFATE
     Dosage: 75 MG, QD
  5. DONEPEZIL. [Concomitant]
     Active Substance: DONEPEZIL
     Dosage: 10 MG, QD
  6. KEPPRA [Suspect]
     Active Substance: LEVETIRACETAM
     Indication: PRODUCT USED FOR UNKNOWN INDICATION
     Dosage: 2 G, QD
     Route: 048
  7. MIRABEGRON [Concomitant]
     Active Substance: MIRABEGRON
     Dosage: 50 MG, QD

REACTIONS (4)
  - Confusional state [Not Recovered/Not Resolved]
  - Irritability [Not Recovered/Not Resolved]
  - Paranoia [Not Recovered/Not Resolved]
  - Psychotic disorder [Not Recovered/Not Resolved]
